FAERS Safety Report 15479267 (Version 1)
Quarter: 2018Q4

REPORT INFORMATION
  Report Type: Spontaneous
  Country: US (occurrence: US)
  Receive Date: 20181009
  Receipt Date: 20181009
  Transmission Date: 20190205
  Serious: No
  Sender: FDA-Public Use
  Company Number: US-KALEO, INC.-AUVI20170024

PATIENT
  Age: 48 Year
  Sex: Female
  Weight: 45.4 kg

DRUGS (1)
  1. AUVI-Q [Suspect]
     Active Substance: EPINEPHRINE
     Indication: ANAPHYLACTIC REACTION
     Dosage: N/A, ONCE, N/A
     Dates: start: 20170817, end: 20170817

REACTIONS (3)
  - Erythema [Recovering/Resolving]
  - Contusion [Recovering/Resolving]
  - Nervousness [Recovered/Resolved]

NARRATIVE: CASE EVENT DATE: 20170817
